FAERS Safety Report 4949448-7 (Version None)
Quarter: 2006Q1

REPORT INFORMATION
  Report Type: 
  Country: None (occurrence: None)
  Receive Date: 20060321
  Receipt Date: 20060310
  Transmission Date: 20060701
  Serious: Yes (Hospitalization)
  Sender: FDA-Public Use
  Company Number: CH-ROCHE-440010

PATIENT
  Age: 92 Year
  Sex: Male
  Weight: 69.5 kg

DRUGS (8)
  1. TORSEMIDE [Suspect]
     Indication: HYPERTENSIVE HEART DISEASE
     Route: 048
     Dates: end: 20060123
  2. NEURONTIN [Suspect]
     Indication: POLYNEUROPATHY
     Route: 048
     Dates: end: 20060201
  3. NEURONTIN [Suspect]
     Dosage: DOSE REDUCED
     Route: 048
     Dates: start: 20060201
  4. MODURETIC 5-50 [Suspect]
     Indication: HYPERTENSIVE HEART DISEASE
     Route: 048
     Dates: end: 20060123
  5. XATRAL [Suspect]
     Route: 048
  6. ASPIRIN [Concomitant]
     Dosage: REPORTED AS ASPIRIN CARDIO
     Route: 048
  7. NITRODERM [Concomitant]
     Route: 062
  8. SORTIS [Concomitant]
     Route: 048
     Dates: end: 20060202

REACTIONS (10)
  - AREFLEXIA [None]
  - ATRIOVENTRICULAR BLOCK FIRST DEGREE [None]
  - CONFUSIONAL STATE [None]
  - COORDINATION ABNORMAL [None]
  - DYSARTHRIA [None]
  - FALL [None]
  - HYPOAESTHESIA [None]
  - MEDICATION ERROR [None]
  - ORTHOSTATIC HYPOTENSION [None]
  - RENAL FAILURE CHRONIC [None]
